FAERS Safety Report 9313138 (Version 1)
Quarter: 2013Q2

REPORT INFORMATION
  Report Type: Spontaneous
  Country: DE (occurrence: DE)
  Receive Date: 20130528
  Receipt Date: 20130528
  Transmission Date: 20140414
  Serious: Yes (Hospitalization)
  Sender: FDA-Public Use
  Company Number: DE-ASTRAZENECA-2013SE35085

PATIENT
  Age: 61 Year
  Sex: Male

DRUGS (7)
  1. BELOC-ZOK [Suspect]
     Indication: HYPERTENSION
     Route: 048
  2. TAZOBAC [Suspect]
     Indication: INFECTIOUS PLEURAL EFFUSION
     Route: 042
     Dates: start: 20130111, end: 20130113
  3. CEFUROXIM [Suspect]
     Route: 042
     Dates: start: 20130113, end: 20130114
  4. CIPROBAY [Suspect]
     Route: 048
     Dates: start: 20130111, end: 20130112
  5. CLINDAMYCIN [Suspect]
     Route: 042
     Dates: start: 20130113
  6. CODIOVAN [Suspect]
     Indication: HYPERTENSION
     Route: 048
  7. TAUROLIN [Suspect]
     Indication: WOUND TREATMENT
     Route: 065

REACTIONS (1)
  - Toxic epidermal necrolysis [Recovering/Resolving]
